FAERS Safety Report 9440566 (Version 2)
Quarter: 2013Q4

REPORT INFORMATION
  Report Type: Spontaneous
  Country: US (occurrence: US)
  Receive Date: 20130805
  Receipt Date: 20131126
  Transmission Date: 20140711
  Serious: Yes (Other)
  Sender: FDA-Public Use
  Company Number: US-PFIZER INC-2013226635

PATIENT
  Age: 75 Year
  Sex: Female
  Weight: 68.03 kg

DRUGS (14)
  1. LYRICA [Suspect]
     Indication: NEURALGIA
     Dosage: 75 MG, 1X/DAY
     Dates: start: 2009
  2. LYRICA [Suspect]
     Indication: BACK PAIN
  3. ALENDRONATE [Concomitant]
     Dosage: 70 MG, WEEKLY
  4. TRAMADOL [Concomitant]
     Dosage: 50 MG, 3X/DAY
  5. OMEPRAZOLE [Concomitant]
     Dosage: 20 MG, UNK
  6. ATENOLOL [Concomitant]
     Dosage: 100 MG, UNK
  7. ASPIRIN [Concomitant]
     Dosage: 80 MG, UNK
  8. LORATADINE [Concomitant]
     Dosage: 10 MG, 1X/DAY
  9. PRAVASTATIN [Concomitant]
     Dosage: 40 MG, 1X/DAY
  10. TRAZODONE [Concomitant]
     Dosage: 50MG DAILY AT NIGHT
  11. CYCLOBENZAPRINE [Concomitant]
     Indication: PAIN
     Dosage: 5 MG, UNK
  12. BENAZEPRIL [Concomitant]
     Indication: HYPERTENSION
     Dosage: 20 MG, 1X/DAY
  13. METOPROLOL [Concomitant]
     Indication: HYPERTENSION
     Dosage: 25 MG, 1X/DAY
  14. CLONIDINE [Concomitant]
     Indication: HYPERTENSION
     Dosage: 0.1 MG, 1X/DAY

REACTIONS (11)
  - Off label use [Unknown]
  - Gout [Unknown]
  - Limb injury [Unknown]
  - Local swelling [Unknown]
  - Blood cholesterol increased [Unknown]
  - Pain [Unknown]
  - Malaise [Unknown]
  - Nasopharyngitis [Unknown]
  - Gait disturbance [Unknown]
  - Limb discomfort [Unknown]
  - Local swelling [Unknown]
